FAERS Safety Report 5161068-0 (Version None)
Quarter: 2006Q4

REPORT INFORMATION
  Report Type: 
  Country: None (occurrence: None)
  Receive Date: 20061121
  Receipt Date: 20061110
  Transmission Date: 20070319
  Serious: Yes (Hospitalization, Disabling)
  Sender: FDA-Public Use
  Company Number: 2006128662

PATIENT
  Age: 36 Year
  Sex: Male

DRUGS (3)
  1. ZOLOFT [Suspect]
     Indication: DEPRESSION
     Dosage: 25 MG, 1 IN 1 D), ORAL
     Route: 048
     Dates: start: 20060725, end: 20060820
  2. TOFRANIL [Concomitant]
  3. SAIBOKU-TO (HERBAL EXTRACTS NOS) [Concomitant]

REACTIONS (3)
  - COLITIS ISCHAEMIC [None]
  - EATING DISORDER [None]
  - STRESS [None]
